FAERS Safety Report 4694962-5 (Version None)
Quarter: 2005Q2

REPORT INFORMATION
  Report Type: 
  Country: None (occurrence: None)
  Receive Date: 20050617
  Receipt Date: 20040510
  Transmission Date: 20051028
  Serious: Yes (Life-Threatening, Hospitalization)
  Sender: FDA-Public Use
  Company Number: US-2004-025159

PATIENT
  Age: 72 Year
  Sex: Male
  Weight: 88.4 kg

DRUGS (2)
  1. FLUDARA [Suspect]
     Indication: CHRONIC LYMPHOCYTIC LEUKAEMIA
     Dosage: 45 MG, CYCLE X 5D/3D, INTRAVENOUS
     Route: 042
     Dates: start: 20030801, end: 20031201
  2. RITUXAN [Suspect]
     Indication: CHRONIC LYMPHOCYTIC LEUKAEMIA
     Dosage: 1 DOSE PER CYCLE, INTRAVENOUS
     Route: 042
     Dates: start: 20030801, end: 20031201

REACTIONS (1)
  - ANAEMIA HAEMOLYTIC AUTOIMMUNE [None]
